FAERS Safety Report 22248167 (Version 2)
Quarter: 2023Q2

REPORT INFORMATION
  Report Type: Report from Study
  Country: US (occurrence: US)
  Receive Date: 20230425
  Receipt Date: 20230426
  Transmission Date: 20230722
  Serious: No
  Sender: FDA-Public Use
  Company Number: US-002147023-NVSC2023US091346

PATIENT
  Sex: Male

DRUGS (1)
  1. BETAMETHASONE [Suspect]
     Active Substance: BETAMETHASONE
     Indication: Psoriasis
     Dosage: UNK (LOTION)
     Route: 065

REACTIONS (9)
  - Blood cholesterol increased [Unknown]
  - Low density lipoprotein increased [Unknown]
  - Mean platelet volume increased [Unknown]
  - Eosinophil percentage increased [Unknown]
  - Blood sodium decreased [Unknown]
  - Blood urea nitrogen/creatinine ratio increased [Unknown]
  - Blood bilirubin unconjugated increased [Unknown]
  - Psoriasis [Unknown]
  - Drug ineffective [Unknown]
